FAERS Safety Report 7036179-5 (Version None)
Quarter: 2010Q4

REPORT INFORMATION
  Report Type: 
  Country: None (occurrence: None)
  Receive Date: 20101008
  Receipt Date: 20100622
  Transmission Date: 20110411
  Serious: No
  Sender: FDA-Public Use
  Company Number: US-BRISTOL-MYERS SQUIBB COMPANY-15161136

PATIENT
  Age: 73 Year
  Sex: Male
  Weight: 79 kg

DRUGS (4)
  1. AVAPRO [Suspect]
     Indication: HYPERTENSION
  2. NORVASC [Concomitant]
  3. PRAVACHOL [Concomitant]
  4. CALCIUM CHANNEL BLOCKER [Concomitant]

REACTIONS (1)
  - URTICARIA [None]
